FAERS Safety Report 9507835 (Version 1)
Quarter: 2013Q3

REPORT INFORMATION
  Report Type: Spontaneous
  Country: US (occurrence: None)
  Receive Date: 20130906
  Receipt Date: 20130906
  Transmission Date: 20140515
  Serious: Yes (Other)
  Sender: FDA-Public Use
  Company Number: None

PATIENT
  Sex: Male
  Weight: 77.11 kg

DRUGS (1)
  1. PHENYTOIN [Suspect]
     Dosage: *HAS BEEN ON BRAND SINCE 5/2013*
     Dates: start: 201106, end: 201305

REACTIONS (3)
  - Somnolence [None]
  - Drug level fluctuating [None]
  - Status epilepticus [None]
